FAERS Safety Report 16296041 (Version 1)
Quarter: 2019Q2

REPORT INFORMATION
  Report Type: Spontaneous
  Country: AU (occurrence: AU)
  Receive Date: 20190510
  Receipt Date: 20190510
  Transmission Date: 20190711
  Serious: Yes (Other)
  Sender: FDA-Public Use
  Company Number: AU-JNJFOC-20190511049

PATIENT
  Age: 39 Year
  Sex: Male

DRUGS (1)
  1. TRAMAL [Suspect]
     Active Substance: TRAMADOL
     Indication: ARTHRALGIA
     Route: 065
     Dates: start: 201609

REACTIONS (6)
  - Substance-induced psychotic disorder [Recovered/Resolved]
  - Homicide [Unknown]
  - Anxiety [Unknown]
  - Product use issue [Unknown]
  - Delusion [Unknown]
  - Agitation [Unknown]

NARRATIVE: CASE EVENT DATE: 201807
